FAERS Safety Report 7601264-3 (Version None)
Quarter: 2011Q3

REPORT INFORMATION
  Report Type: 
  Country: None (occurrence: None)
  Receive Date: 20110711
  Receipt Date: 20110628
  Transmission Date: 20111222
  Serious: Yes (Hospitalization)
  Sender: FDA-Public Use
  Company Number: CA-JNJFOC-20110703076

PATIENT
  Sex: Male
  Weight: 76.3 kg

DRUGS (8)
  1. LIPITOR [Concomitant]
  2. BISOPROLOL FUMARATE [Concomitant]
  3. CELEBREX [Concomitant]
  4. RAMIPRIL [Concomitant]
  5. METHOTREXATE [Concomitant]
  6. NEXIUM [Concomitant]
  7. REMICADE [Suspect]
     Indication: RHEUMATOID ARTHRITIS
     Dosage: TO THE ^PRESENT^
     Route: 042
     Dates: start: 20031001
  8. ASPIRIN [Concomitant]

REACTIONS (1)
  - MYOCARDIAL INFARCTION [None]
